FAERS Safety Report 11159695 (Version 1)
Quarter: 2015Q2

REPORT INFORMATION
  Report Type: Spontaneous
  Country: US (occurrence: None)
  Receive Date: 20150602
  Receipt Date: 20150602
  Transmission Date: 20150821
  Serious: Yes (Other)
  Sender: FDA-Public Use
  Company Number: None

PATIENT
  Age: 44 Year
  Sex: Female
  Weight: 108.86 kg

DRUGS (1)
  1. ZOLOFT [Suspect]
     Active Substance: SERTRALINE HYDROCHLORIDE
     Indication: DEPRESSION
     Dosage: 1 1/2 PILLS  ONCE DAILY  TAKEN BY MOUTH
     Route: 048

REACTIONS (3)
  - Trigeminal neuralgia [None]
  - Activities of daily living impaired [None]
  - Condition aggravated [None]

NARRATIVE: CASE EVENT DATE: 20100115
